FAERS Safety Report 6508908-8 (Version None)
Quarter: 2009Q4

REPORT INFORMATION
  Report Type: 
  Country: None (occurrence: None)
  Receive Date: 20091221
  Receipt Date: 20090916
  Transmission Date: 20100525
  Serious: No
  Sender: FDA-Public Use
  Company Number: US-ASTRAZENECA-2009SE13673

PATIENT
  Age: 66 Year
  Sex: Female
  Weight: 63.5 kg

DRUGS (7)
  1. CRESTOR [Suspect]
     Dosage: HALF TABLET
     Route: 048
  2. TRICOR [Concomitant]
  3. DIOVAN HCT [Concomitant]
  4. ZYRTEC [Concomitant]
  5. FORTAMET [Concomitant]
  6. KLOR-CON [Concomitant]
  7. TYLENOL [Concomitant]

REACTIONS (4)
  - ALOPECIA [None]
  - ANDROGENETIC ALOPECIA [None]
  - RASH [None]
  - STRESS [None]
